FAERS Safety Report 4285462-5 (Version None)
Quarter: 2004Q1

REPORT INFORMATION
  Report Type: 
  Country: None (occurrence: None)
  Receive Date: 20040202
  Receipt Date: 20040120
  Transmission Date: 20041129
  Serious: Yes (Life-Threatening, Other)
  Sender: FDA-Public Use
  Company Number: 2004195153DE

PATIENT
  Age: 71 Year
  Sex: Female

DRUGS (3)
  1. DELTASONE [Suspect]
     Dosage: 10 MG, QD
  2. THEOPHYLLINE [Concomitant]
  3. IPRATROPIUM BROMIDE [Concomitant]

REACTIONS (4)
  - ARTERIAL RUPTURE [None]
  - CARDIAC FAILURE [None]
  - CHRONIC OBSTRUCTIVE AIRWAYS DISEASE EXACERBATED [None]
  - HYPOTENSION [None]
